FAERS Safety Report 4886908-1 (Version None)
Quarter: 2006Q1

REPORT INFORMATION
  Report Type: 
  Country: None (occurrence: None)
  Receive Date: 20060119
  Receipt Date: 20060116
  Transmission Date: 20060701
  Serious: Yes (Other)
  Sender: FDA-Public Use
  Company Number: TCI2006A00008

PATIENT
  Age: 83 Year
  Sex: Female

DRUGS (2)
  1. LANSOPRAZOLE [Suspect]
     Indication: ABDOMINAL PAIN UPPER
     Dosage: PER ORAL
     Route: 048
     Dates: start: 20000101, end: 20050701
  2. LANSOPRAZOLE [Suspect]
     Indication: REFLUX OESOPHAGITIS
     Dosage: PER ORAL
     Route: 048
     Dates: start: 20000101, end: 20050701

REACTIONS (20)
  - ABDOMINAL DISTENSION [None]
  - ABDOMINAL PAIN [None]
  - ARRHYTHMIA [None]
  - ARTERIOSCLEROSIS [None]
  - ASTHENIA [None]
  - COUGH [None]
  - DIFFICULTY IN WALKING [None]
  - DIZZINESS [None]
  - ENDOSCOPY ABNORMAL [None]
  - FLUID RETENTION [None]
  - HAEMATOCHEZIA [None]
  - HIATUS HERNIA [None]
  - HYPOAESTHESIA [None]
  - RASH [None]
  - RED BLOOD CELL COUNT DECREASED [None]
  - RENAL DISORDER [None]
  - RHABDOMYOLYSIS [None]
  - SLEEP DISORDER [None]
  - ULCER [None]
  - VISION BLURRED [None]
